FAERS Safety Report 10797176 (Version 1)
Quarter: 2015Q1

REPORT INFORMATION
  Report Type: Spontaneous
  Country: US (occurrence: US)
  Receive Date: 20150216
  Receipt Date: 20150216
  Transmission Date: 20150721
  Serious: No
  Sender: FDA-Public Use
  Company Number: US-TEVA-484569USA

PATIENT
  Sex: Female

DRUGS (1)
  1. ALENDRONIC ACID [Suspect]
     Active Substance: ALENDRONIC ACID

REACTIONS (13)
  - Influenza like illness [Unknown]
  - Disturbance in attention [Unknown]
  - Wrong technique in drug usage process [Unknown]
  - Neck pain [Not Recovered/Not Resolved]
  - Myalgia [Unknown]
  - Dyspepsia [Unknown]
  - Pain in extremity [Unknown]
  - Musculoskeletal pain [Unknown]
  - Malaise [Unknown]
  - Arthralgia [Unknown]
  - Chest pain [Unknown]
  - Dyspnoea [Unknown]
  - Abdominal pain upper [Unknown]
